FAERS Safety Report 4889219-3 (Version None)
Quarter: 2006Q1

REPORT INFORMATION
  Report Type: 
  Country: None (occurrence: None)
  Receive Date: 20060120
  Receipt Date: 20060120
  Transmission Date: 20060701
  Serious: No
  Sender: FDA-Public Use
  Company Number: None

PATIENT
  Age: 64 Year
  Sex: Male

DRUGS (1)
  1. ZOCOR [Suspect]
     Dates: start: 20020523

REACTIONS (14)
  - ABDOMINAL DISTENSION [None]
  - ALANINE AMINOTRANSFERASE INCREASED [None]
  - ALCOHOL USE [None]
  - ASCITES [None]
  - ASPARTATE AMINOTRANSFERASE INCREASED [None]
  - BLOOD BILIRUBIN INCREASED [None]
  - CHROMATURIA [None]
  - FATIGUE [None]
  - GENERALISED OEDEMA [None]
  - HEPATIC FIBROSIS [None]
  - HEPATIC STEATOSIS [None]
  - LYMPHOMA [None]
  - MEDIASTINAL MASS [None]
  - ORTHOPNOEA [None]
